FAERS Safety Report 7645973-9 (Version None)
Quarter: 2011Q3

REPORT INFORMATION
  Report Type: 
  Country: None (occurrence: None)
  Receive Date: 20110729
  Receipt Date: 20110719
  Transmission Date: 20111222
  Serious: Yes (Other)
  Sender: FDA-Public Use
  Company Number: US-ASTRAZENECA-2011SE43435

PATIENT
  Age: 60 Year
  Sex: Male
  Weight: 90.7 kg

DRUGS (6)
  1. TOPROL-XL [Suspect]
     Route: 048
  2. METOPROLOL TARTRATE [Suspect]
     Indication: BLOOD PRESSURE
     Route: 048
  3. SIROLIMUS [Suspect]
     Indication: RENAL TRANSPLANT
     Route: 048
     Dates: start: 20100901
  4. ATACAND [Suspect]
     Indication: BLOOD PRESSURE
     Route: 048
  5. CELLCEPT [Suspect]
     Route: 065
  6. ATIVAN [Suspect]
     Route: 048

REACTIONS (9)
  - ABDOMINAL DISTENSION [None]
  - WEIGHT DECREASED [None]
  - ASTHENIA [None]
  - DECREASED APPETITE [None]
  - HYPOTENSION [None]
  - FATIGUE [None]
  - NAUSEA [None]
  - MALAISE [None]
  - DIARRHOEA [None]
